FAERS Safety Report 5554905-9 (Version None)
Quarter: 2007Q4

REPORT INFORMATION
  Report Type: 
  Country: None (occurrence: None)
  Receive Date: 20071211
  Receipt Date: 20071127
  Transmission Date: 20080405
  Serious: Yes (Other)
  Sender: FDA-Public Use
  Company Number: US021809

PATIENT
  Age: 31 Year
  Sex: Female

DRUGS (3)
  1. PROVIGIL [Suspect]
     Indication: MULTIPLE SCLEROSIS
     Dosage: 200 MG QD ORAL
     Route: 048
     Dates: start: 20071031
  2. TOPAMAX [Suspect]
     Indication: MIGRAINE
     Dosage: 100 MG BID
     Dates: start: 20070913, end: 20071030
  3. TOPAMAX [Suspect]
     Indication: MIGRAINE
     Dosage: 150 MG BID
     Dates: start: 20071031

REACTIONS (1)
  - URTICARIA [None]
